FAERS Safety Report 4868329-0 (Version None)
Quarter: 2005Q4

REPORT INFORMATION
  Report Type: 
  Country: None (occurrence: None)
  Receive Date: 20051229
  Receipt Date: 20050923
  Transmission Date: 20060501
  Serious: Yes (Hospitalization)
  Sender: FDA-Public Use
  Company Number: US-MERCK-0509USA03834

PATIENT
  Age: 76 Year
  Sex: Male
  Weight: 85 kg

DRUGS (20)
  1. VIOXX [Suspect]
     Indication: SPINAL OSTEOARTHRITIS
     Route: 048
     Dates: start: 20000328, end: 20010101
  2. ZOFRAN [Concomitant]
     Route: 065
  3. LASIX [Concomitant]
     Route: 065
  4. K-DUR 10 [Concomitant]
     Route: 065
  5. ZOCOR [Concomitant]
     Route: 065
  6. ZITHROMAX [Concomitant]
     Route: 065
  7. KLOR-CON [Concomitant]
     Route: 065
  8. NORVASC [Concomitant]
     Route: 065
  9. DIGOXIN [Concomitant]
     Route: 065
  10. COREG [Concomitant]
     Route: 065
  11. SILTUSSIN (GUAIFENESIN) [Concomitant]
     Route: 065
  12. RANITIDINE-BC [Concomitant]
     Route: 065
  13. FLEXEN (ORPHENADRINE CITRATE) [Concomitant]
     Route: 065
  14. GNC GLUCOSAMINE CHONDROTIN [Concomitant]
     Route: 065
  15. VITAMIN E [Concomitant]
     Route: 065
  16. VITAMIN B COMPLEX [Concomitant]
     Route: 065
  17. ASCORBIC ACID [Concomitant]
     Route: 065
  18. GINKGO BILOBA FORTE [Concomitant]
     Route: 065
  19. PROPOXYPHENE HYDROCHLORIDE [Concomitant]
     Route: 065
  20. HYZAAR [Concomitant]
     Route: 065

REACTIONS (8)
  - AORTIC VALVE INCOMPETENCE [None]
  - AORTIC VALVE SCLEROSIS [None]
  - CAROTID ARTERY STENOSIS [None]
  - DILATATION ATRIAL [None]
  - DILATATION VENTRICULAR [None]
  - MITRAL VALVE INCOMPETENCE [None]
  - MYOCARDIAL INFARCTION [None]
  - TRICUSPID VALVE INCOMPETENCE [None]
